FAERS Safety Report 5217841-3 (Version None)
Quarter: 2007Q1

REPORT INFORMATION
  Report Type: 
  Country: None (occurrence: None)
  Receive Date: 20061130
  Receipt Date: 20060720
  Transmission Date: 20070707
  Serious: Yes (Hospitalization)
  Sender: FDA-Public Use
  Company Number: US200607004593

PATIENT
  Sex: Male
  Weight: 58.5 kg

DRUGS (6)
  1. ZYPREXA [Suspect]
     Dates: start: 20010201, end: 20030501
  2. SEROQUEL [Concomitant]
  3. RISPERDAL [Concomitant]
  4. CELEXA [Concomitant]
  5. INDERAL [Concomitant]
  6. PROZAC [Concomitant]

REACTIONS (2)
  - DIABETES MELLITUS [None]
  - TRANSIENT ISCHAEMIC ATTACK [None]
